FAERS Safety Report 11243609 (Version 1)
Quarter: 2015Q3

REPORT INFORMATION
  Report Type: Spontaneous
  Country: GB (occurrence: GB)
  Receive Date: 20150707
  Receipt Date: 20150707
  Transmission Date: 20151125
  Serious: Yes (Disabling)
  Sender: FDA-Public Use
  Company Number: GB-TEVA-575373ACC

PATIENT
  Age: 70 Year
  Sex: Female
  Weight: 93 kg

DRUGS (6)
  1. RAMIPRIL. [Suspect]
     Active Substance: RAMIPRIL
     Dates: start: 20150605
  2. CINNARIZINE [Concomitant]
     Active Substance: CINNARIZINE
     Dosage: 6 DOSAGE FORMS DAILY;
     Dates: start: 20150513, end: 20150610
  3. LANSOPRAZOLE. [Concomitant]
     Active Substance: LANSOPRAZOLE
     Dosage: 1 DOSAGE FORMS DAILY;
     Dates: start: 20121218
  4. CANDESARTAN [Concomitant]
     Active Substance: CANDESARTAN
     Dosage: 1 DOSAGE FORMS DAILY;
     Dates: start: 20121218, end: 20150605
  5. PARACETAMOL [Concomitant]
     Active Substance: ACETAMINOPHEN
     Dosage: 1-2 TO BE TAKEN FOUR TIMES DAILY
     Dates: start: 20140716
  6. BETAHISTINE [Concomitant]
     Active Substance: BETAHISTINE
     Dosage: 3 DOSAGE FORMS DAILY;
     Dates: start: 20150513, end: 20150610

REACTIONS (2)
  - Disorientation [Recovered/Resolved]
  - Feeling abnormal [Recovered/Resolved]
